FAERS Safety Report 24684024 (Version 1)
Quarter: 2024Q4

REPORT INFORMATION
  Report Type: Spontaneous
  Country: FR (occurrence: FR)
  Receive Date: 20241202
  Receipt Date: 20241202
  Transmission Date: 20250114
  Serious: Yes (Hospitalization, Other)
  Sender: MERCK
  Company Number: None

PATIENT
  Age: 80 Year
  Sex: Female
  Weight: 70 kg

DRUGS (8)
  1. JANUVIA [Suspect]
     Active Substance: SITAGLIPTIN PHOSPHATE
     Indication: Type 2 diabetes mellitus
     Dosage: 50 MILLIGRAM, Q12H
     Route: 058
     Dates: start: 20241025, end: 20241101
  2. IOMERON [Suspect]
     Active Substance: IOMEPROL
     Indication: Computerised tomogram thorax
     Dosage: UNK
     Route: 042
     Dates: start: 20241028, end: 20241028
  3. OZEMPIC [Suspect]
     Active Substance: SEMAGLUTIDE
     Indication: Type 2 diabetes mellitus
     Dosage: 0.5 MILLIGRAM
     Route: 058
     Dates: start: 20241028, end: 20241028
  4. WARFARIN SODIUM [Concomitant]
     Active Substance: WARFARIN SODIUM
     Dosage: UNK
  5. BISOPROLOL FUMARATE [Concomitant]
     Active Substance: BISOPROLOL FUMARATE
     Dosage: UNK
  6. ALLOPURINOL [Concomitant]
     Active Substance: ALLOPURINOL
  7. BUMETANIDE [Concomitant]
     Active Substance: BUMETANIDE
  8. INVOKANA [Concomitant]
     Active Substance: CANAGLIFLOZIN

REACTIONS (1)
  - Acute generalised exanthematous pustulosis [Recovered/Resolved]

NARRATIVE: CASE EVENT DATE: 20241029
